FAERS Safety Report 15356912 (Version 2)
Quarter: 2018Q3

REPORT INFORMATION
  Report Type: Spontaneous
  Country: BE (occurrence: BE)
  Receive Date: 20180906
  Receipt Date: 20180911
  Transmission Date: 20181010
  Serious: Yes (Other)
  Sender: FDA-Public Use
  Company Number: BE-PFIZER INC-2018353063

PATIENT
  Age: 54 Year
  Sex: Male

DRUGS (6)
  1. METHYLPREDNISOLONE. [Suspect]
     Active Substance: METHYLPREDNISOLONE
     Indication: CASTLEMAN^S DISEASE
     Dosage: 4 MG, DAILY
  2. EMTRICITABINE [Concomitant]
     Active Substance: EMTRICITABINE
     Dosage: UNK
  3. RITUXIMAB. [Suspect]
     Active Substance: RITUXIMAB
     Indication: CASTLEMAN^S DISEASE
     Dosage: 375 MG/M2, CYCLIC (EVERY 4 WEEKS)
     Route: 042
  4. TENOFOVIR [Concomitant]
     Active Substance: TENOFOVIR
     Dosage: UNK
  5. RITONAVIR. [Concomitant]
     Active Substance: RITONAVIR
     Dosage: UNK
  6. DARUNAVIR [Concomitant]
     Active Substance: DARUNAVIR
     Dosage: UNK

REACTIONS (2)
  - Infected skin ulcer [Recovered/Resolved]
  - Cytomegalovirus mucocutaneous ulcer [Recovered/Resolved]
